FAERS Safety Report 5525305-2 (Version None)
Quarter: 2007Q4

REPORT INFORMATION
  Report Type: 
  Country: None (occurrence: None)
  Receive Date: 20071126
  Receipt Date: 20070815
  Transmission Date: 20080405
  Serious: Yes (Other)
  Sender: FDA-Public Use
  Company Number: US-ASTRAZENECA-2006UW02725

PATIENT
  Age: 2614 Day
  Sex: Male
  Weight: 95.5 kg

DRUGS (6)
  1. SEROQUEL [Suspect]
     Indication: SLEEP DISORDER
     Dosage: 150 MG - 300 MG
     Route: 048
     Dates: start: 20010101, end: 20040427
  2. SEROQUEL [Suspect]
     Indication: PSYCHOMOTOR HYPERACTIVITY
     Dosage: 150 MG - 300 MG
     Route: 048
     Dates: start: 20010101, end: 20040427
  3. SEROQUEL [Suspect]
     Route: 048
     Dates: start: 20040424, end: 20040617
  4. SEROQUEL [Suspect]
     Route: 048
     Dates: start: 20040424, end: 20040617
  5. RISPERDAL [Suspect]
     Dates: start: 20010101, end: 20030808
  6. ZYPREXA [Suspect]
     Dates: start: 20020101, end: 20040601

REACTIONS (4)
  - APPENDICECTOMY [None]
  - ILL-DEFINED DISORDER [None]
  - INJURY [None]
  - PANCREATITIS [None]
